FAERS Safety Report 11443195 (Version 3)
Quarter: 2015Q4

REPORT INFORMATION
  Report Type: Spontaneous
  Country: US (occurrence: US)
  Receive Date: 20150901
  Receipt Date: 20151203
  Transmission Date: 20160304
  Serious: Yes (Life-Threatening, Hospitalization, Other)
  Sender: FDA-Public Use
  Company Number: US-PURDUE PHARMA-USA-2015-0125927

PATIENT
  Age: 58 Year
  Sex: Female
  Weight: 51.25 kg

DRUGS (6)
  1. OXYCONTIN [Suspect]
     Active Substance: OXYCODONE HYDROCHLORIDE
     Indication: ARTHRITIS
  2. SOMA [Concomitant]
     Active Substance: CARISOPRODOL
     Indication: PAIN MANAGEMENT
     Dosage: 350 MG, (4-5 PER DAY)
     Route: 048
  3. OXYCONTIN [Suspect]
     Active Substance: OXYCODONE HYDROCHLORIDE
     Indication: INTERVERTEBRAL DISC DEGENERATION
     Dosage: 80 MG, TID
     Route: 048
  4. OXYCONTIN [Suspect]
     Active Substance: OXYCODONE HYDROCHLORIDE
     Indication: ANALGESIC THERAPY
     Dosage: 80 MG, FIVE TIMES PER DAY
     Route: 048
  5. NORCO [Concomitant]
     Active Substance: ACETAMINOPHEN\HYDROCODONE BITARTRATE
     Indication: BREAKTHROUGH PAIN
     Dosage: 10 MG (4-5 PER DAY), PRN
     Route: 048
  6. SOMA [Concomitant]
     Active Substance: CARISOPRODOL
     Indication: ARTHRITIS

REACTIONS (14)
  - Drug withdrawal syndrome [Unknown]
  - Diarrhoea [Not Recovered/Not Resolved]
  - Arthritis [Unknown]
  - Chronic obstructive pulmonary disease [Unknown]
  - Respiratory failure [Recovered/Resolved]
  - Hepatitis C [Unknown]
  - Arthralgia [Not Recovered/Not Resolved]
  - Loss of consciousness [Recovered/Resolved]
  - Myalgia [Not Recovered/Not Resolved]
  - Pneumonia [Unknown]
  - Malaise [Unknown]
  - Drug ineffective [Not Recovered/Not Resolved]
  - Insomnia [Not Recovered/Not Resolved]
  - Drug abuse [Unknown]

NARRATIVE: CASE EVENT DATE: 2000
